FAERS Safety Report 4689268-4 (Version None)
Quarter: 2005Q2

REPORT INFORMATION
  Report Type: 
  Country: None (occurrence: None)
  Receive Date: 20050608
  Receipt Date: 20050322
  Transmission Date: 20051028
  Serious: No
  Sender: FDA-Public Use
  Company Number: 2005-BP-04870BP

PATIENT
  Sex: Female

DRUGS (10)
  1. SPIRIVA [Suspect]
     Indication: CHRONIC OBSTRUCTIVE PULMONARY DISEASE
     Dosage: 18 MCG (18 MCG, QD), IH
     Route: 055
     Dates: start: 20041201, end: 20050318
  2. SPIRIVA [Suspect]
     Indication: EMPHYSEMA
     Dosage: 18 MCG (18 MCG, QD), IH
     Route: 055
     Dates: start: 20041201, end: 20050318
  3. ATROVENT [Suspect]
     Indication: CHRONIC OBSTRUCTIVE PULMONARY DISEASE
     Dosage: 6 PUF, IH
     Route: 055
     Dates: start: 20050101
  4. ATROVENT [Suspect]
     Indication: EMPHYSEMA
     Dosage: 6 PUF, IH
     Route: 055
     Dates: start: 20050101
  5. ADVAIR DISKUS 100/50 [Suspect]
     Indication: CHRONIC OBSTRUCTIVE PULMONARY DISEASE
     Dosage: 2 PUF, IH
     Route: 055
     Dates: start: 20040301
  6. FLOVENT [Concomitant]
  7. ALBUTEROL [Concomitant]
  8. OXYGEN (OXYGEN) [Concomitant]
  9. ETODOLAC [Concomitant]
  10. PROTONIX [Concomitant]

REACTIONS (1)
  - DYSPNOEA EXACERBATED [None]
